FAERS Safety Report 6694081-2 (Version None)
Quarter: 2010Q2

REPORT INFORMATION
  Report Type: 
  Country: None (occurrence: None)
  Receive Date: 20100423
  Receipt Date: 20100419
  Transmission Date: 20101027
  Serious: Yes (Death, Hospitalization)
  Sender: FDA-Public Use
  Company Number: BR-ASTRAZENECA-2010SE17147

PATIENT
  Age: 84 Year
  Sex: Female
  Weight: 100 kg

DRUGS (1)
  1. ARIMIDEX [Suspect]
     Indication: BREAST CANCER
     Dosage: OD
     Route: 048
     Dates: start: 20060101

REACTIONS (1)
  - DYSPNOEA [None]
